FAERS Safety Report 19422265 (Version 1)
Quarter: 2021Q2

REPORT INFORMATION
  Report Type: Spontaneous
  Country: CA (occurrence: CA)
  Receive Date: 20210616
  Receipt Date: 20210616
  Transmission Date: 20210717
  Serious: Yes (Other)
  Sender: FDA-Public Use
  Company Number: CA-TEVA-2021-CA-1921837

PATIENT
  Age: 73 Year
  Sex: Female
  Weight: 67.19 kg

DRUGS (2)
  1. MONOCOR ? TAB 5MG [Concomitant]
  2. ROSUVASTATIN. [Suspect]
     Active Substance: ROSUVASTATIN
     Indication: BLOOD CHOLESTEROL
     Dosage: 10 MILLIGRAM DAILY;
     Route: 048

REACTIONS (9)
  - Chest discomfort [Unknown]
  - Dizziness [Unknown]
  - Nausea [Unknown]
  - Tachycardia [Unknown]
  - Bradycardia [Unknown]
  - Fatigue [Unknown]
  - Palpitations [Unknown]
  - Blood cholesterol increased [Unknown]
  - Blood lactate dehydrogenase increased [Unknown]
